FAERS Safety Report 10207528 (Version 1)
Quarter: 2014Q2

REPORT INFORMATION
  Report Type: Spontaneous
  Country: US (occurrence: None)
  Receive Date: 20140529
  Receipt Date: 20140529
  Transmission Date: 20141212
  Serious: Yes (Life-Threatening, Disabling)
  Sender: FDA-Public Use
  Company Number: None

PATIENT
  Age: 70 Year
  Sex: Male
  Weight: 76.2 kg

DRUGS (1)
  1. SILDENAFIL 20 MG MYLAN [Suspect]
     Indication: ERECTILE DYSFUNCTION
     Dosage: 20 MG AS NEEDED TAKEN BY MOUTH
     Route: 048
     Dates: start: 201401

REACTIONS (7)
  - Aphagia [None]
  - Product substitution issue [None]
  - Product quality issue [None]
  - Abdominal pain upper [None]
  - Neck pain [None]
  - No therapeutic response [None]
  - Pain [None]
